FAERS Safety Report 17043146 (Version 4)
Quarter: 2020Q1

REPORT INFORMATION
  Report Type: Spontaneous
  Country: US (occurrence: US)
  Receive Date: 20191118
  Receipt Date: 20200226
  Transmission Date: 20200409
  Serious: No
  Sender: FDA-Public Use
  Company Number: US-PFIZER INC-2019371887

PATIENT
  Age: 81 Year
  Sex: Female

DRUGS (1)
  1. IBRANCE [Suspect]
     Active Substance: PALBOCICLIB
     Indication: ENDOMETRIAL CANCER
     Dosage: 125 MG, UNK

REACTIONS (4)
  - Product dose omission [Unknown]
  - Off label use [Unknown]
  - Memory impairment [Unknown]
  - Product use in unapproved indication [Unknown]
